FAERS Safety Report 24856230 (Version 1)
Quarter: 2025Q1

REPORT INFORMATION
  Report Type: Spontaneous
  Country: US (occurrence: US)
  Receive Date: 20250117
  Receipt Date: 20250117
  Transmission Date: 20250409
  Serious: Yes (Hospitalization, Disabling)
  Sender: PFIZER
  Company Number: US-PFIZER INC-202500008639

PATIENT
  Age: 83 Year
  Sex: Male
  Weight: 94.24 kg

DRUGS (10)
  1. VYNDAMAX [Suspect]
     Active Substance: TAFAMIDIS
     Indication: Cardiac amyloidosis
  2. ELIQUIS [Concomitant]
     Active Substance: APIXABAN
     Indication: Coronary artery disease
     Dosage: 5MG TWICE PER DAY
  3. ASPIRIN [Concomitant]
     Active Substance: ASPIRIN
     Indication: Coronary artery disease
     Dosage: 81MG A ONCE A DAY
  4. LIPITOR [Concomitant]
     Active Substance: ATORVASTATIN CALCIUM
     Indication: Hyperlipidaemia
     Dosage: 20MG; ONCE PER DAY BY MOUTH
     Route: 048
  5. CALCITRIOL [Concomitant]
     Active Substance: CALCITRIOL
     Indication: Chronic kidney disease
     Dosage: 0.25MCG ONCE PER DAY
  6. COREG [Concomitant]
     Active Substance: CARVEDILOL
     Dosage: 6.2MG TWICE PER DAY
  7. DOXYCYCLINE [Concomitant]
     Active Substance: DOXYCYCLINE
     Dosage: 100MG TWICE PER DAY
  8. TAPAZOLE [Concomitant]
     Active Substance: METHIMAZOLE
     Dosage: 5MG ONCE PER DAY
  9. BUMEX [Concomitant]
     Active Substance: BUMETANIDE
     Dosage: 0.5MG TWICE PER DAY MY MOUTH
     Route: 048
  10. JARDIANCE [Concomitant]
     Active Substance: EMPAGLIFLOZIN
     Dosage: 2MG ONCE PER DAY

REACTIONS (5)
  - Cardiac failure acute [Unknown]
  - Cerebrovascular accident [Unknown]
  - Dysphagia [Unknown]
  - Off label use [Unknown]
  - Wrong technique in product usage process [Unknown]
